FAERS Safety Report 5153150-9 (Version None)
Quarter: 2006Q4

REPORT INFORMATION
  Report Type: 
  Country: None (occurrence: None)
  Receive Date: 20061117
  Receipt Date: 20061114
  Transmission Date: 20070319
  Serious: Yes (Other)
  Sender: FDA-Public Use
  Company Number: 2006JP004646

PATIENT
  Age: 9 Year
  Sex: Female

DRUGS (2)
  1. CEFAMEZIN [Suspect]
     Route: 042
  2. CONCURRENT MEDICATIONS [Concomitant]

REACTIONS (1)
  - INTERSTITIAL LUNG DISEASE [None]
